FAERS Safety Report 6619450-8 (Version None)
Quarter: 2010Q1

REPORT INFORMATION
  Report Type: 
  Country: None (occurrence: None)
  Receive Date: 20100304
  Receipt Date: 20100224
  Transmission Date: 20100710
  Serious: Yes (Other)
  Sender: FDA-Public Use
  Company Number: 2010SP011782

PATIENT
  Age: 29 Year
  Sex: Male

DRUGS (4)
  1. REMERON [Suspect]
     Indication: DRUG USE FOR UNKNOWN INDICATION
     Dosage: 15 MG;QD;PO
     Route: 048
     Dates: start: 20091017, end: 20100107
  2. HALCION (CON.) [Concomitant]
  3. JZOLOFT (CON.) [Concomitant]
  4. SOLANAX (CON.) [Concomitant]

REACTIONS (1)
  - EPILEPSY [None]
